FAERS Safety Report 6148096-3 (Version None)
Quarter: 2009Q2

REPORT INFORMATION
  Report Type: 
  Country: None (occurrence: None)
  Receive Date: 20090408
  Receipt Date: 20090402
  Transmission Date: 20091009
  Serious: Yes (Other)
  Sender: FDA-Public Use
  Company Number: D0061144A

PATIENT

DRUGS (1)
  1. LAMOTRIGINE (RATIOPHARM) [Suspect]
     Dosage: 50MG UNKNOWN
     Dates: start: 20030101

REACTIONS (2)
  - CONGENITAL CYSTIC KIDNEY DISEASE [None]
  - DRUG EXPOSURE DURING PREGNANCY [None]
